FAERS Safety Report 8372928-1 (Version None)
Quarter: 2012Q2

REPORT INFORMATION
  Report Type: 
  Country: None (occurrence: None)
  Receive Date: 20120521
  Receipt Date: 20120223
  Transmission Date: 20120825
  Serious: No
  Sender: FDA-Public Use
  Company Number: US-ASTRAZENECA-2012SE13892

PATIENT
  Sex: Female

DRUGS (2)
  1. LEVOTHYROXINE SODIUM [Concomitant]
     Dosage: UNKNOWN
  2. PRILOSEC OTC [Suspect]
     Dosage: 1 TABLET MUPS, 1 /DAY OFF AND ON
     Route: 048
     Dates: end: 20120222

REACTIONS (1)
  - AGEUSIA [None]
